FAERS Safety Report 11467550 (Version 4)
Quarter: 2015Q4

REPORT INFORMATION
  Report Type: Spontaneous
  Country: IT (occurrence: IT)
  Receive Date: 20150908
  Receipt Date: 20151204
  Transmission Date: 20160304
  Serious: Yes (Death, Life-Threatening, Hospitalization, Other)
  Sender: FDA-Public Use
  Company Number: IT-BRISTOL-MYERS SQUIBB COMPANY-BMS-2015-057547

PATIENT
  Age: 73 Year
  Sex: Female
  Weight: 70 kg

DRUGS (5)
  1. COUMADIN [Suspect]
     Active Substance: WARFARIN SODIUM
     Indication: TACHYARRHYTHMIA
     Dosage: 5 MG, PRN
     Route: 048
     Dates: start: 20140101, end: 20150406
  2. TORVAST [Concomitant]
     Active Substance: ATORVASTATIN
     Indication: DYSLIPIDAEMIA
     Dosage: 1 UNIT, UNK
     Route: 048
  3. SOTALEX [Interacting]
     Active Substance: SOTALOL
     Indication: TACHYARRHYTHMIA
     Dosage: 1 UNIT, QD
     Route: 048
     Dates: start: 20140101, end: 20150406
  4. TRIATEC                            /00116401/ [Concomitant]
     Active Substance: ACETAMINOPHEN\CODEINE PHOSPHATE
     Indication: HYPERTENSION
     Dosage: 1 UNIT, UNK
     Route: 048
  5. NORFLOXACIN [Interacting]
     Active Substance: NORFLOXACIN
     Indication: PRODUCT USED FOR UNKNOWN INDICATION
     Dosage: 400 MG, QD
     Route: 065

REACTIONS (4)
  - Cerebral haemorrhage [Fatal]
  - International normalised ratio increased [Unknown]
  - Drug interaction [Unknown]
  - Electrocardiogram QT prolonged [Unknown]

NARRATIVE: CASE EVENT DATE: 20140406
